FAERS Safety Report 7563967-9 (Version None)
Quarter: 2011Q2

REPORT INFORMATION
  Report Type: 
  Country: None (occurrence: None)
  Receive Date: 20110622
  Receipt Date: 20110608
  Transmission Date: 20111010
  Serious: Yes (Life-Threatening, Hospitalization)
  Sender: FDA-Public Use
  Company Number: IT-PFIZER INC-2010182276

PATIENT
  Age: 65 Year
  Sex: Female

DRUGS (6)
  1. SUTENT [Suspect]
     Indication: RENAL CANCER
     Dosage: 50 MG, 1X/DAY
     Route: 048
     Dates: start: 20080204, end: 20080401
  2. UNIPRIL [Concomitant]
     Dosage: 1 UNIT DOSE
     Route: 048
  3. LUVION [Concomitant]
     Dosage: 50 MG, UNK
     Route: 048
  4. LANSOPRAZOLE [Concomitant]
     Dosage: 15 MG, UNK
     Route: 048
  5. ASPIRIN [Concomitant]
     Dosage: 100 MG, UNK
     Route: 048
  6. TORVAST [Concomitant]
     Dosage: 20 MG, UNK
     Route: 048

REACTIONS (4)
  - CARDIAC FAILURE [None]
  - INTRACARDIAC THROMBUS [None]
  - MYOCARDIAL ISCHAEMIA [None]
  - ACUTE CORONARY SYNDROME [None]
